FAERS Safety Report 5350003-8 (Version None)
Quarter: 2007Q2

REPORT INFORMATION
  Report Type: 
  Country: None (occurrence: None)
  Receive Date: 20070607
  Receipt Date: 20070529
  Transmission Date: 20071010
  Serious: Yes (Other)
  Sender: FDA-Public Use
  Company Number: US-PFIZER INC-2007045011

PATIENT
  Sex: Male

DRUGS (2)
  1. LIPITOR [Suspect]
  2. DRUG, UNSPECIFIED [Concomitant]
     Indication: DIABETES MELLITUS

REACTIONS (6)
  - ARTHRALGIA [None]
  - ASTHENIA [None]
  - FATIGUE [None]
  - MUSCULAR WEAKNESS [None]
  - MYALGIA [None]
  - WALKING DISABILITY [None]
